FAERS Safety Report 7755051-6 (Version None)
Quarter: 2011Q3

REPORT INFORMATION
  Report Type: 
  Country: None (occurrence: None)
  Receive Date: 20110913
  Receipt Date: 20110829
  Transmission Date: 20111222
  Serious: Yes (Hospitalization)
  Sender: FDA-Public Use
  Company Number: DSM-2011-00793

PATIENT
  Age: 77 Year
  Sex: Female

DRUGS (4)
  1. OLMESARTAN MEDOXOMIL [Suspect]
     Indication: PRODUCT USED FOR UNKNOWN INDICATION
     Dosage: ORAL
     Route: 048
  2. LEVOTHYROXINE SODIUM [Concomitant]
  3. SEVIKAR (OLMESARTAN MEDOXOMIL, AMLODIPINE BESILATE) (TABLET) [Suspect]
     Indication: PRODUCT USED FOR UNKNOWN INDICATION
     Dosage: 20 MG AMLODIPINE / DOSE OF HYDROCHLORITHIAZIDE NOT REPORTED, ORAL
     Route: 048
     Dates: start: 20101201, end: 20110501
  4. GABACET (PIRACETAM) [Concomitant]

REACTIONS (1)
  - COLITIS MICROSCOPIC [None]
